FAERS Safety Report 24990495 (Version 1)
Quarter: 2025Q1

REPORT INFORMATION
  Report Type: Spontaneous
  Country: ES (occurrence: ES)
  Receive Date: 20250220
  Receipt Date: 20250220
  Transmission Date: 20250408
  Serious: Yes (Hospitalization, Other)
  Sender: MERCK SHARP & DOHME LLC
  Company Number: None

PATIENT
  Age: 61 Year
  Sex: Male
  Weight: 75 kg

DRUGS (20)
  1. PEMBROLIZUMAB [Suspect]
     Active Substance: PEMBROLIZUMAB
     Indication: Lung cancer metastatic
     Dosage: ON 11-APR-2024, I RECEIVED MOST RECENT DOSE OF PEMBROLIZUMAB PRIOR TO AE/SAE.
     Route: 042
     Dates: start: 20230615
  2. PEMBROLIZUMAB [Suspect]
     Active Substance: PEMBROLIZUMAB
     Indication: Lung cancer metastatic
     Route: 042
  3. TIRAGOLUMAB [Suspect]
     Active Substance: TIRAGOLUMAB
     Indication: Lung cancer metastatic
     Route: 042
     Dates: start: 20230615, end: 20240411
  4. CARBOPLATIN [Suspect]
     Active Substance: CARBOPLATIN
     Indication: Lung cancer metastatic
     Dosage: ON 17-AUG-2023, RECEIVED MOST RECENT DOSE OF CARBOPLATIN (645 MG) PRIOR TO AE AND SAE.
     Route: 042
     Dates: start: 20230615, end: 20230817
  5. PEMETREXED [Suspect]
     Active Substance: PEMETREXED
     Indication: Lung cancer metastatic
     Dosage: ON 11-APR-2024, RECEIVED MOST RECENT DOSE OF PEMETREXED (1000 MG) PRIOR TO AE AND SAE.
     Route: 042
     Dates: start: 20230615, end: 20240411
  6. ATEZOLIZUMAB [Suspect]
     Active Substance: ATEZOLIZUMAB
     Indication: Lung cancer metastatic
     Route: 042
     Dates: start: 20230615, end: 20240411
  7. FOLIC ACID [Concomitant]
     Active Substance: FOLIC ACID
     Route: 048
     Dates: start: 20230523
  8. VITAMIN B12 [Concomitant]
     Active Substance: CYANOCOBALAMIN
     Route: 030
     Dates: start: 20230525
  9. VILANTEROL [Concomitant]
     Active Substance: VILANTEROL
     Route: 045
     Dates: start: 20230530
  10. UMECLIDINIUM [Concomitant]
     Active Substance: UMECLIDINIUM
     Route: 045
     Dates: start: 20230530
  11. DEXAMETHASONE [Concomitant]
     Active Substance: DEXAMETHASONE
     Route: 042
     Dates: start: 20230615
  12. ONDANSETRON HYDROCHLORIDE [Concomitant]
     Active Substance: ONDANSETRON HYDROCHLORIDE
     Route: 042
     Dates: start: 20230615
  13. CARBOXYMETHYLCELLULOSE SODIUM [Concomitant]
     Active Substance: CARBOXYMETHYLCELLULOSE SODIUM
     Indication: Eye pruritus
     Route: 047
     Dates: start: 20230726
  14. NICOTINE [Concomitant]
     Active Substance: NICOTINE
     Dates: start: 20230810
  15. ALBUTEROL [Concomitant]
     Active Substance: ALBUTEROL
     Indication: Oropharyngeal pain
     Dates: start: 20240313
  16. ACETAMINOPHEN [Concomitant]
     Active Substance: ACETAMINOPHEN
     Route: 048
     Dates: start: 20230816
  17. PIPERACILLIN [Concomitant]
     Active Substance: PIPERACILLIN
     Indication: Respiratory tract infection
     Route: 042
     Dates: start: 20240414
  18. TAZOBACTAM [Concomitant]
     Active Substance: TAZOBACTAM
     Indication: Respiratory tract infection
     Route: 042
     Dates: start: 20240414
  19. IPRATROPIUM BROMIDE [Concomitant]
     Active Substance: IPRATROPIUM BROMIDE
     Indication: Bronchospasm
     Dates: start: 20240402
  20. PREDNISONE [Concomitant]
     Active Substance: PREDNISONE
     Indication: Bronchospasm
     Route: 048
     Dates: start: 20240409

REACTIONS (1)
  - Febrile neutropenia [Recovered/Resolved]

NARRATIVE: CASE EVENT DATE: 20240604
